FAERS Safety Report 8777105 (Version 3)
Quarter: 2012Q4

REPORT INFORMATION
  Report Type: 
  Country: US (occurrence: US)
  Receive Date: 20120911
  Receipt Date: 20121017
  Transmission Date: 20130627
  Serious: Yes (Death)
  Sender: FDA-Public Use
  Company Number: US-CELGENEUS-163-21880-12090669

PATIENT
  Age: 74 None
  Sex: Male

DRUGS (3)
  1. REVLIMID [Suspect]
     Indication: 5Q MINUS MYELODYSPLASTIC SYNDROME
     Dosage: 10 Milligram
     Route: 048
     Dates: start: 20120814, end: 20120827
  2. REVLIMID [Suspect]
     Indication: ACUTE MYELOID LEUKEMIA
  3. DACOGEN [Concomitant]
     Indication: ACUTE MYELOID LEUKEMIA
     Dosage: 36.6 Milligram
     Route: 041
     Dates: start: 20120730, end: 20120803

REACTIONS (6)
  - Fall [Fatal]
  - Haemorrhage intracranial [Fatal]
  - Acute myeloid leukaemia [Fatal]
  - Platelet count decreased [Fatal]
  - Asthenia [Unknown]
  - Anaemia [Unknown]
